FAERS Safety Report 4588686-2 (Version None)
Quarter: 2005Q1

REPORT INFORMATION
  Report Type: 
  Country: None (occurrence: None)
  Receive Date: 20050222
  Receipt Date: 20050215
  Transmission Date: 20050727
  Serious: Yes (Hospitalization)
  Sender: FDA-Public Use
  Company Number: US-MERCK-0502USA01964

PATIENT
  Age: 69 Year
  Sex: Female

DRUGS (3)
  1. VIOXX [Suspect]
     Indication: NERVE COMPRESSION
     Route: 048
     Dates: start: 20031101
  2. GEMFIBROZIL [Concomitant]
     Route: 065
  3. VITAMINS (UNSPECIFIED) [Concomitant]
     Route: 065

REACTIONS (2)
  - BREAST HAEMORRHAGE [None]
  - RECTAL HAEMORRHAGE [None]
